FAERS Safety Report 12505055 (Version 1)
Quarter: 2016Q2

REPORT INFORMATION
  Report Type: Spontaneous
  Country: US (occurrence: US)
  Receive Date: 20160628
  Receipt Date: 20160628
  Transmission Date: 20160815
  Serious: Yes (Other)
  Sender: FDA-Public Use
  Company Number: US-GLAXOSMITHKLINE-US2016GSK090663

PATIENT
  Age: 46 Year
  Sex: Female

DRUGS (12)
  1. SABRIL [Suspect]
     Active Substance: VIGABATRIN
     Indication: TEMPORAL LOBE EPILEPSY
     Dosage: 2000 MG, BID
     Route: 048
     Dates: start: 20140602
  2. DROXIDOPA [Concomitant]
     Active Substance: DROXIDOPA
  3. LAMICTAL [Suspect]
     Active Substance: LAMOTRIGINE
     Indication: PRODUCT USED FOR UNKNOWN INDICATION
     Dosage: UNK, U
  4. PHENOBARBITAL. [Concomitant]
     Active Substance: PHENOBARBITAL
  5. LORAZEPAM. [Concomitant]
     Active Substance: LORAZEPAM
  6. VIMPAT [Concomitant]
     Active Substance: LACOSAMIDE
  7. ONFI [Concomitant]
     Active Substance: CLOBAZAM
  8. DEPAKOTE [Concomitant]
     Active Substance: DIVALPROEX SODIUM
  9. SABRIL [Suspect]
     Active Substance: VIGABATRIN
     Dosage: 1500 MG, BID
     Route: 048
  10. VALPROIC ACID. [Suspect]
     Active Substance: VALPROIC ACID
     Indication: PRODUCT USED FOR UNKNOWN INDICATION
     Dosage: UNK, U
  11. SABRIL [Suspect]
     Active Substance: VIGABATRIN
     Indication: COMPLEX PARTIAL SEIZURES
     Dosage: 500 MG, BID
     Route: 048
     Dates: start: 20140515
  12. SABRIL [Suspect]
     Active Substance: VIGABATRIN
     Indication: EPILEPSY
     Dosage: 1000 MG, BID
     Route: 048

REACTIONS (6)
  - Pain in extremity [Not Recovered/Not Resolved]
  - Joint stiffness [Unknown]
  - Arthralgia [Recovered/Resolved]
  - Seizure [Recovering/Resolving]
  - Fall [Recovered/Resolved]
  - Dizziness [Unknown]

NARRATIVE: CASE EVENT DATE: 20140617
